FAERS Safety Report 4467859-3 (Version None)
Quarter: 2004Q4

REPORT INFORMATION
  Report Type: 
  Country: None (occurrence: None)
  Receive Date: 20041004
  Receipt Date: 20040917
  Transmission Date: 20050328
  Serious: Yes (Hospitalization)
  Sender: FDA-Public Use
  Company Number: 430008P04GBR

PATIENT
  Age: 60 Year
  Sex: Male

DRUGS (4)
  1. NOVANTRONE [Suspect]
     Indication: LYMPHOMA
     Dosage: 12 MG/M2, 1 IN 1 CYCLE, INTRAVENOUS
     Route: 042
     Dates: start: 20040619
  2. DEXAMETHASONE [Suspect]
     Dosage: 20 MG, 5 IN 5 DAYS, ORAL
     Route: 048
     Dates: start: 20040619
  3. FLUDARABINE PHOSPHATE [Suspect]
     Dosage: 25 MG/M2, 3 IN 3 DAYS, INTRAVENOUS
     Dates: start: 20040619
  4. WARFARIN SODIUM [Concomitant]

REACTIONS (2)
  - HAEMOGLOBIN DECREASED [None]
  - NEUTROPENIC SEPSIS [None]
